FAERS Safety Report 5705197-9 (Version None)
Quarter: 2008Q2

REPORT INFORMATION
  Report Type: 
  Country: None (occurrence: None)
  Receive Date: 20080410
  Receipt Date: 20080402
  Transmission Date: 20081010
  Serious: Yes (Life-Threatening, Hospitalization, Other)
  Sender: FDA-Public Use
  Company Number: 163-21880-07111261

PATIENT
  Age: 70 Year
  Sex: Female

DRUGS (3)
  1. REVLIMID [Suspect]
     Indication: MULTIPLE MYELOMA
     Dosage: 25 MG, 1 IN 1 D, ORAL
     Route: 048
     Dates: start: 20070509, end: 20071222
  2. HYDROCHLOROTHIAZIDE [Concomitant]
  3. GLUCOPHAGE [Concomitant]

REACTIONS (5)
  - ASTHMA [None]
  - BONE MARROW FAILURE [None]
  - EPISTAXIS [None]
  - HAEMOGLOBIN DECREASED [None]
  - VIRAL UPPER RESPIRATORY TRACT INFECTION [None]
